FAERS Safety Report 5633441-5 (Version None)
Quarter: 2008Q1

REPORT INFORMATION
  Report Type: 
  Country: None (occurrence: None)
  Receive Date: 20080221
  Receipt Date: 20080209
  Transmission Date: 20080703
  Serious: Yes (Death, Hospitalization, Other)
  Sender: FDA-Public Use
  Company Number: US-PFIZER INC-2007097611

PATIENT
  Sex: Male
  Weight: 46.363 kg

DRUGS (2)
  1. ZYVOX [Suspect]
     Indication: OSTEOMYELITIS
     Dates: start: 20060101, end: 20071119
  2. INSULIN [Concomitant]
     Indication: DIABETES MELLITUS

REACTIONS (5)
  - ACIDOSIS [None]
  - ATRIAL FIBRILLATION [None]
  - DEATH [None]
  - LACTIC ACIDOSIS [None]
  - RENAL FAILURE ACUTE [None]
